FAERS Safety Report 15230394 (Version 2)
Quarter: 2018Q3

REPORT INFORMATION
  Report Type: Spontaneous
  Country: US (occurrence: US)
  Receive Date: 20180802
  Receipt Date: 20180817
  Transmission Date: 20181010
  Serious: No
  Sender: FDA-Public Use
  Company Number: US-B.I. PHARMACEUTICALS,INC./RIDGEFIELD-2018-BI-038379

PATIENT
  Sex: Male

DRUGS (1)
  1. SPIRIVA [Suspect]
     Active Substance: TIOTROPIUM BROMIDE MONOHYDRATE
     Indication: ASTHMA
     Dosage: 1 CAPSULE DAILY;  FORM STRENGTH: 18 MCG; FORM: CAPSULE?ACTION(S) TAKEN WITH PRODUCT: DOSE NOT CHANGE
     Route: 055
     Dates: start: 2016

REACTIONS (3)
  - Product quality issue [Unknown]
  - Off label use [Unknown]
  - Medication error [Recovered/Resolved]
